FAERS Safety Report 7817763-5 (Version None)
Quarter: 2011Q4

REPORT INFORMATION
  Report Type: 
  Country: None (occurrence: None)
  Receive Date: 20111017
  Receipt Date: 20111006
  Transmission Date: 20120403
  Serious: Yes (Other)
  Sender: FDA-Public Use
  Company Number: US-JNJFOC-20111003719

PATIENT
  Age: 75 Year
  Sex: Male

DRUGS (3)
  1. PRAVACHOL [Suspect]
     Indication: BLOOD CHOLESTEROL
     Route: 048
     Dates: end: 20110901
  2. ZYTIGA [Suspect]
     Indication: PROSTATE CANCER
     Route: 048
     Dates: start: 20110801
  3. LUPRON [Concomitant]
     Indication: PROSTATE CANCER
     Route: 050
     Dates: start: 20090101

REACTIONS (6)
  - BLOOD PRESSURE DECREASED [None]
  - HEADACHE [None]
  - NEUROPATHY PERIPHERAL [None]
  - PROSTATIC SPECIFIC ANTIGEN INCREASED [None]
  - RHINORRHOEA [None]
  - MUSCLE SPASMS [None]
